FAERS Safety Report 4892668-0 (Version None)
Quarter: 2006Q1

REPORT INFORMATION
  Report Type: 
  Country: None (occurrence: None)
  Receive Date: 20060126
  Receipt Date: 20060116
  Transmission Date: 20060701
  Serious: Yes (Death)
  Sender: FDA-Public Use
  Company Number: JP-SANOFI-SYNTHELABO-A01200600529

PATIENT
  Sex: Male

DRUGS (3)
  1. OXALIPLATIN [Suspect]
     Route: 042
     Dates: start: 20060111, end: 20060111
  2. CALCIUM LEVOFOLINATE [Suspect]
     Route: 042
     Dates: start: 20060111, end: 20060111
  3. FLUOROURACIL [Suspect]
     Route: 042
     Dates: start: 20060111, end: 20060111

REACTIONS (2)
  - ACUTE MYOCARDIAL INFARCTION [None]
  - MYOCARDIAL INFARCTION [None]
